FAERS Safety Report 23899678 (Version 1)
Quarter: 2024Q2

REPORT INFORMATION
  Report Type: Spontaneous
  Country: US (occurrence: None)
  Receive Date: 20240526
  Receipt Date: 20240526
  Transmission Date: 20240716
  Serious: No
  Sender: FDA-Public Use
  Company Number: US-ROCHE-3336580

PATIENT
  Age: 63 Year
  Sex: Female
  Weight: 79.45 kg

DRUGS (1)
  1. ACTEMRA [Suspect]
     Active Substance: TOCILIZUMAB
     Indication: Rheumatoid arthritis
     Route: 058

REACTIONS (6)
  - Drug hypersensitivity [Recovered/Resolved]
  - Swelling face [Unknown]
  - Dry skin [Unknown]
  - Swelling [Unknown]
  - Tooth disorder [Unknown]
  - Sunburn [Unknown]
